FAERS Safety Report 17289206 (Version 1)
Quarter: 2020Q1

REPORT INFORMATION
  Report Type: Spontaneous
  Country: US (occurrence: US)
  Receive Date: 20200120
  Receipt Date: 20200120
  Transmission Date: 20200409
  Serious: Yes (Hospitalization)
  Sender: FDA-Public Use
  Company Number: US-PRECISION DOSE, INC.-2020PRD00001

PATIENT
  Age: 43 Year
  Sex: Male

DRUGS (1)
  1. PHENTOLAMINE MESYLATE. [Suspect]
     Active Substance: PHENTOLAMINE MESYLATE
     Route: 065

REACTIONS (4)
  - Seizure [Recovering/Resolving]
  - Overdose [Recovering/Resolving]
  - Metabolic acidosis [Recovering/Resolving]
  - Shock [Recovering/Resolving]
